FAERS Safety Report 12486505 (Version 4)
Quarter: 2016Q3

REPORT INFORMATION
  Report Type: Spontaneous
  Country: US (occurrence: US)
  Receive Date: 20160621
  Receipt Date: 20160715
  Transmission Date: 20161109
  Serious: Yes (Disabling, Other)
  Sender: FDA-Public Use
  Company Number: US-FRI-1000085473

PATIENT
  Age: 68 Year
  Sex: Female

DRUGS (8)
  1. BYSTOLIC [Suspect]
     Active Substance: NEBIVOLOL HYDROCHLORIDE
     Dosage: LESS THAN 4MG DAILY AT NIGHT
     Route: 048
  2. BYSTOLIC [Suspect]
     Active Substance: NEBIVOLOL HYDROCHLORIDE
  3. BYSTOLIC [Suspect]
     Active Substance: NEBIVOLOL HYDROCHLORIDE
     Route: 048
  4. BYSTOLIC [Suspect]
     Active Substance: NEBIVOLOL HYDROCHLORIDE
     Indication: HYPERTENSION
     Route: 048
     Dates: start: 201509
  5. BYSTOLIC [Suspect]
     Active Substance: NEBIVOLOL HYDROCHLORIDE
     Route: 048
  6. BYSTOLIC [Suspect]
     Active Substance: NEBIVOLOL HYDROCHLORIDE
     Dates: end: 20160701
  7. NORVASC [Suspect]
     Active Substance: AMLODIPINE BESYLATE
  8. BYSTOLIC [Suspect]
     Active Substance: NEBIVOLOL HYDROCHLORIDE
     Route: 048

REACTIONS (19)
  - Anxiety [Recovering/Resolving]
  - Drug hypersensitivity [Recovering/Resolving]
  - Brain injury [Unknown]
  - Cognitive disorder [Unknown]
  - Decreased appetite [Recovering/Resolving]
  - Sleep disorder [Recovering/Resolving]
  - Emotional poverty [Unknown]
  - Insomnia [Recovering/Resolving]
  - Reading disorder [Recovering/Resolving]
  - Crying [Unknown]
  - Mental impairment [Recovering/Resolving]
  - Bowel movement irregularity [Recovering/Resolving]
  - Weight increased [Recovering/Resolving]
  - Unevaluable event [Unknown]
  - Dementia [Unknown]
  - Fatigue [Recovering/Resolving]
  - Catatonia [Unknown]
  - Insomnia [Not Recovered/Not Resolved]
  - Judgement impaired [Unknown]
